FAERS Safety Report 8585651-5 (Version None)
Quarter: 2012Q3

REPORT INFORMATION
  Report Type: 
  Country: None (occurrence: None)
  Receive Date: 20120802
  Receipt Date: 20120802
  Transmission Date: 20120928
  Serious: Yes (Hospitalization)
  Sender: FDA-Public Use
  Company Number: None

PATIENT
  Sex: Male
  Weight: 124.7392 kg

DRUGS (1)
  1. KRYSTEXA 8MG SAVLENT [Suspect]
     Indication: GOUT
     Dosage: 8MG EVERY 2 WKS IV
     Route: 042
     Dates: start: 20120425, end: 20120724

REACTIONS (4)
  - PRURITUS GENERALISED [None]
  - SWOLLEN TONGUE [None]
  - PHARYNGEAL OEDEMA [None]
  - URTICARIA [None]
